FAERS Safety Report 9093831 (Version 1)
Quarter: 2013Q1

REPORT INFORMATION
  Report Type: Spontaneous
  Country: US (occurrence: None)
  Receive Date: 20130214
  Receipt Date: 20130214
  Transmission Date: 20140127
  Serious: Yes (Life-Threatening, Hospitalization)
  Sender: FDA-Public Use
  Company Number: None

PATIENT
  Sex: Male

DRUGS (2)
  1. VANCOMYCIN [Suspect]
     Indication: VASCULAR OPERATION
     Route: 042
     Dates: start: 20120627, end: 20120702
  2. PIPERACILLIN/TAZOBACTAM [Suspect]
     Indication: VASCULAR OPERATION
     Route: 042
     Dates: start: 20120627, end: 20120702

REACTIONS (1)
  - Renal failure acute [None]
